FAERS Safety Report 4712640-0 (Version None)
Quarter: 2005Q3

REPORT INFORMATION
  Report Type: 
  Country: None (occurrence: None)
  Receive Date: 20050706
  Receipt Date: 20040804
  Transmission Date: 20060218
  Serious: Yes (Hospitalization, Other)
  Sender: FDA-Public Use
  Company Number: US-2004-029505

PATIENT
  Sex: Male

DRUGS (3)
  1. CAMPATH [Suspect]
     Indication: CHRONIC LYMPHOCYTIC LEUKAEMIA
     Dosage: SEE IMAGE
     Route: 058
     Dates: start: 20040512, end: 20040517
  2. CAMPATH [Suspect]
     Indication: CHRONIC LYMPHOCYTIC LEUKAEMIA
     Dosage: SEE IMAGE
     Route: 058
     Dates: start: 20040602, end: 20040604
  3. CAMPATH [Suspect]
     Indication: CHRONIC LYMPHOCYTIC LEUKAEMIA
     Dosage: SEE IMAGE
     Route: 058
     Dates: start: 20040607, end: 20040614

REACTIONS (2)
  - CYTOMEGALOVIRUS INFECTION [None]
  - TENOSYNOVITIS [None]
